FAERS Safety Report 18141449 (Version 3)
Quarter: 2020Q3

REPORT INFORMATION
  Report Type: Spontaneous
  Country: DE (occurrence: DE)
  Receive Date: 20200812
  Receipt Date: 20200814
  Transmission Date: 20201103
  Serious: Yes (Hospitalization, Other)
  Sender: FDA-Public Use
  Company Number: DE-PFIZER INC-2020308263

PATIENT
  Age: 65 Year
  Sex: Male

DRUGS (16)
  1. XIPAMID [Suspect]
     Active Substance: XIPAMIDE
     Dosage: 10 MG, QD (10 MG, 1?0?0?0)
     Route: 048
  2. RAMIPRIL. [Suspect]
     Active Substance: RAMIPRIL
     Dosage: 5 MG, BID (5 MG, 1?0?1?0)
     Route: 048
  3. ESCITALOPRAM [Concomitant]
     Active Substance: ESCITALOPRAM OXALATE
     Dosage: 10 MG, QD, (10 MG, 1?0?0?0)
     Route: 048
  4. ERYFER [ASCORBIC ACID;FERROUS SULFATE;SODIUM BICARBONATE] [Concomitant]
     Dosage: 100 MG, QD (100 MG, 1?0?0?0)
     Route: 048
  5. ATORVASTATIN [Concomitant]
     Active Substance: ATORVASTATIN
     Dosage: 40 MG, 1X/DAY
     Route: 048
  6. ATORVASTATIN [Concomitant]
     Active Substance: ATORVASTATIN
     Dosage: 20 MG(0?0?2?0)
  7. LACOSAMIDE. [Concomitant]
     Active Substance: LACOSAMIDE
     Dosage: 50 MG, BID (50 MG, 2?0?2?0)
  8. EZETIMIBE. [Concomitant]
     Active Substance: EZETIMIBE
     Dosage: 10 MG, QD (10 MG, 0?0?1?0)
     Route: 048
  9. APIXABAN [Concomitant]
     Active Substance: APIXABAN
     Dosage: 5 MG, BID (5 MG, 1?0?1?0)
     Route: 048
  10. CLOPIDOGREL [Concomitant]
     Active Substance: CLOPIDOGREL BISULFATE
     Dosage: 75 MG, QD (75 MG, 1?0?0?0)
     Route: 048
  11. LACOSAMIDE. [Concomitant]
     Active Substance: LACOSAMIDE
     Dosage: 100 MG, 2X/DAY
     Route: 048
  12. AMLODIPINE BESILATE [Suspect]
     Active Substance: AMLODIPINE BESYLATE
     Dosage: 5 MG, QD (5 MG, 1?0?1?0)
     Route: 048
  13. TORASEMID [Suspect]
     Active Substance: TORSEMIDE
     Dosage: 10 MG (10 MG, 2?1?0?0)
     Route: 048
  14. EPLERENONE. [Concomitant]
     Active Substance: EPLERENONE
     Dosage: 25 MG, QD (25 MG, 1?0?0?0)
     Route: 048
  15. PANTOPRAZOL [PANTOPRAZOLE] [Concomitant]
     Active Substance: PANTOPRAZOLE
     Dosage: 40 MG, QD, (40 MG, 1?0?0?0)
     Route: 048
  16. METOPROLOL. [Concomitant]
     Active Substance: METOPROLOL
     Dosage: 95 MG, (95 MG, 1?0?0.5?0 )
     Route: 048

REACTIONS (8)
  - Dehydration [Unknown]
  - Thirst [Unknown]
  - Condition aggravated [Unknown]
  - Acute kidney injury [Unknown]
  - Malaise [Unknown]
  - Dizziness [Unknown]
  - Hypotension [Unknown]
  - Product prescribing error [Unknown]
